FAERS Safety Report 5593616-0 (Version None)
Quarter: 2007Q4

REPORT INFORMATION
  Report Type: 
  Country: None (occurrence: None)
  Receive Date: 20071218
  Receipt Date: 20070315
  Transmission Date: 20080405
  Serious: Yes (Hospitalization, Other)
  Sender: FDA-Public Use
  Company Number: 2006151097

PATIENT
  Age: 40 Year
  Sex: Male

DRUGS (12)
  1. BEXTRA [Suspect]
     Indication: ARTHRITIS
     Dosage: 20 MG (20 MG,1 IN 1 D),ORAL
     Route: 048
     Dates: start: 20040701
  2. PRILOSEC [Concomitant]
  3. PROVIGIL [Concomitant]
  4. NEURONTIN [Concomitant]
  5. SEROQUEL [Concomitant]
  6. TOPAMAX [Concomitant]
  7. SKELAXIN [Concomitant]
  8. EFFEXOR [Concomitant]
  9. ULTRAM [Concomitant]
  10. TRICOR [Concomitant]
  11. CLARINEX [Concomitant]
  12. PERI-COLACE [Concomitant]

REACTIONS (3)
  - ANXIETY [None]
  - HYPERTENSION [None]
  - MYOCARDIAL INFARCTION [None]
